FAERS Safety Report 9053291 (Version 1)
Quarter: 2013Q1

REPORT INFORMATION
  Report Type: Spontaneous
  Country: ES (occurrence: ES)
  Receive Date: 20130207
  Receipt Date: 20130207
  Transmission Date: 20140127
  Serious: Yes (Hospitalization)
  Sender: FDA-Public Use
  Company Number: ES-B.I. PHARMACEUTICALS,INC./RIDGEFIELD-2013-BI-03026GD

PATIENT
  Age: 69 Year
  Sex: Female

DRUGS (5)
  1. DOXYLAMINE [Suspect]
     Indication: INSOMNIA
     Dosage: 400 MG
     Route: 048
  2. RANITIDINE [Suspect]
     Dosage: 150 MG
  3. ACECLOFENAC [Suspect]
     Dosage: 100 MG
  4. FOLIC ACID [Suspect]
     Dosage: 10 MG
  5. ZOLPIDEM [Suspect]
     Dosage: 5 MG

REACTIONS (8)
  - Inappropriate antidiuretic hormone secretion [Recovered/Resolved]
  - Overdose [Unknown]
  - Hyponatraemia [Recovered/Resolved]
  - Confusional state [Recovered/Resolved]
  - Somnolence [Recovered/Resolved]
  - Coma [Recovered/Resolved]
  - Somnolence [Recovered/Resolved]
  - Mydriasis [Recovered/Resolved]
